FAERS Safety Report 5146492-4 (Version None)
Quarter: 2006Q4

REPORT INFORMATION
  Report Type: 
  Country: None (occurrence: None)
  Receive Date: 20061102
  Receipt Date: 20061024
  Transmission Date: 20070319
  Serious: Yes (Hospitalization)
  Sender: FDA-Public Use
  Company Number: 2006129819

PATIENT
  Age: 32 Year
  Sex: Male
  Weight: 84.8226 kg

DRUGS (1)
  1. COOL MINT LISTERINE (MENTHOL, METHYL SALICYLATE, EUCALYPTOL, THYMOL) [Suspect]
     Indication: DENTAL DISORDER PROPHYLAXIS
     Dosage: 1 TEASPOON ONCE EVERY FEW MONTHS, ORAL
     Route: 048
     Dates: start: 20050101, end: 20061024

REACTIONS (1)
  - ANAPHYLACTIC REACTION [None]
